FAERS Safety Report 9619741 (Version 1)
Quarter: 2013Q4

REPORT INFORMATION
  Report Type: Spontaneous
  Country: US (occurrence: US)
  Receive Date: 20131014
  Receipt Date: 20131014
  Transmission Date: 20140711
  Serious: Yes (Other)
  Sender: FDA-Public Use
  Company Number: US-BAXTER-2013BAX039374

PATIENT
  Age: 19 Year
  Sex: Male

DRUGS (4)
  1. OSMITROL INJECTION (MANNITOL INJECTION, USP) [Suspect]
     Indication: HEAD INJURY
     Route: 065
  2. DEXAMETHASONE [Concomitant]
     Indication: HEAD INJURY
     Route: 065
  3. DIAZEPAM [Concomitant]
     Indication: CONVULSION
     Route: 042
  4. PHENYTOIN SODIUM [Concomitant]
     Indication: CONVULSION
     Route: 042

REACTIONS (2)
  - Toxicity to various agents [Recovered/Resolved]
  - Medication error [Recovered/Resolved]
